FAERS Safety Report 10631087 (Version 1)
Quarter: 2014Q4

REPORT INFORMATION
  Report Type: Spontaneous
  Country: US (occurrence: None)
  Receive Date: 20141121
  Receipt Date: 20141121
  Transmission Date: 20150529
  Serious: No
  Sender: FDA-Public Use
  Company Number: 163-10004-14085256

PATIENT
  Age: 59 Year
  Sex: Female
  Weight: 72.58 kg

DRUGS (4)
  1. OTEZLA [Suspect]
     Active Substance: APREMILAST
     Indication: PSORIATIC ARTHROPATHY
     Route: 048
     Dates: start: 20140825
  2. LISINOPRIL. [Concomitant]
     Active Substance: LISINOPRIL
  3. NAPROXEN. [Concomitant]
     Active Substance: NAPROXEN
  4. METFORMIN [Concomitant]
     Active Substance: METFORMIN HYDROCHLORIDE

REACTIONS (2)
  - Nausea [None]
  - Photosensitivity reaction [None]

NARRATIVE: CASE EVENT DATE: 20140825
